FAERS Safety Report 6690523-7 (Version None)
Quarter: 2010Q2

REPORT INFORMATION
  Report Type: 
  Country: None (occurrence: None)
  Receive Date: 20100421
  Receipt Date: 20090509
  Transmission Date: 20101027
  Serious: Yes (Hospitalization)
  Sender: FDA-Public Use
  Company Number: US-MERCK-0905USA01246

PATIENT
  Age: 5 Year
  Sex: Male

DRUGS (1)
  1. COZAAR [Suspect]
     Indication: HYPERTENSION
     Route: 065
     Dates: start: 20071101

REACTIONS (3)
  - ADVERSE EVENT [None]
  - INCORRECT STORAGE OF DRUG [None]
  - WRONG TECHNIQUE IN DRUG USAGE PROCESS [None]
